FAERS Safety Report 4658379-1 (Version None)
Quarter: 2005Q2

REPORT INFORMATION
  Report Type: 
  Country: None (occurrence: None)
  Receive Date: 20050509
  Receipt Date: 20050428
  Transmission Date: 20051028
  Serious: Yes (Hospitalization, Other)
  Sender: FDA-Public Use
  Company Number: 2005067359

PATIENT
  Sex: Female
  Weight: 58.9676 kg

DRUGS (5)
  1. CELEBREX [Suspect]
     Indication: OSTEOARTHRITIS
     Dosage: 200 MG (200 MG, 1 IN 1 D), ORAL
     Route: 048
     Dates: end: 20050401
  2. PRILOSEC [Concomitant]
  3. FOSAMAX [Concomitant]
  4. CALCIUM SUPPLEMENTS (CALCIUM) [Concomitant]
  5. LESCOL [Concomitant]

REACTIONS (4)
  - ARTERIAL OCCLUSIVE DISEASE [None]
  - BURSA DISORDER [None]
  - MYOCARDIAL INFARCTION [None]
  - PAIN [None]
